FAERS Safety Report 26198538 (Version 1)
Quarter: 2025Q4

REPORT INFORMATION
  Report Type: Spontaneous
  Country: US (occurrence: US)
  Receive Date: 20251224
  Receipt Date: 20251224
  Transmission Date: 20260117
  Serious: Yes (Death, Hospitalization)
  Sender: TEVA
  Company Number: US-TEVA-VS-3255526

PATIENT
  Age: 81 Year
  Sex: Female

DRUGS (3)
  1. AUSTEDO [Suspect]
     Active Substance: DEUTETRABENAZINE
     Indication: Tardive dyskinesia
     Dosage: TAKE 1 TABLET OF 9 MG ALONG WITH 1 TABLET OF 6 MG TWICE A DAY (TOTAL DOSE OF 15 MG TWICE A DAY)
     Route: 048
     Dates: start: 20240509
  2. AUSTEDO [Suspect]
     Active Substance: DEUTETRABENAZINE
     Indication: Tardive dyskinesia
     Dosage: TAKE TWO TABLETS TWICE DAILY
     Route: 065
  3. AUSTEDO [Suspect]
     Active Substance: DEUTETRABENAZINE
     Indication: Tardive dyskinesia
     Dosage: TAKE 1 TABLET OF 9 MG ALONG WITH 1 TABLET OF 6 MG TWICE A DAY (TOTAL DOSE OF 15 MG TWICE A DAY)
     Route: 048
     Dates: start: 20240509

REACTIONS (2)
  - Death [Fatal]
  - Living in residential institution [Unknown]

NARRATIVE: CASE EVENT DATE: 20240101
